FAERS Safety Report 9548403 (Version 1)
Quarter: 2013Q3

REPORT INFORMATION
  Report Type: Spontaneous
  Country: US (occurrence: None)
  Receive Date: 20130919
  Receipt Date: 20130919
  Transmission Date: 20140515
  Serious: Yes (Hospitalization, Other)
  Sender: FDA-Public Use
  Company Number: 2012-004120

PATIENT
  Age: 72 Year
  Sex: Female
  Weight: 51.7 kg

DRUGS (8)
  1. ACTONEL (RISEDRONATE SODIUM) TABLET [Suspect]
     Route: 048
  2. FOSAMAX (ALENDRONATE SODIUM) [Suspect]
     Indication: OSTEOPOROSIS
     Route: 048
     Dates: start: 200112, end: 200606
  3. PREMPRO (ESTROGENS CONJUGATED, MEDROXYPROGESTERONE ACETATE) [Concomitant]
  4. PREMARIN (ESTROGENS CONJUGATED) [Concomitant]
  5. VIOXX (ROFECOXIB) [Concomitant]
  6. MULTIVITAMIN /00831701/) [Concomitant]
  7. VITAMIN D / 00318501/(COLECALCIFEROL) [Concomitant]
  8. CALCIUM (CALCIUM) [Concomitant]

REACTIONS (3)
  - Atypical femur fracture [None]
  - Fall [None]
  - Arthralgia [None]
